FAERS Safety Report 24980072 (Version 3)
Quarter: 2025Q2

REPORT INFORMATION
  Report Type: Spontaneous
  Country: US (occurrence: US)
  Receive Date: 20250218
  Receipt Date: 20250416
  Transmission Date: 20250716
  Serious: No
  Sender: JOHNSON AND JOHNSON
  Company Number: US-JNJFOC-20250124960

PATIENT
  Sex: Female
  Weight: 57.15 kg

DRUGS (1)
  1. STELARA [Suspect]
     Active Substance: USTEKINUMAB
     Indication: Crohn^s disease
     Route: 058
     Dates: start: 20240829

REACTIONS (7)
  - Product closure issue [Unknown]
  - Product complaint [Unknown]
  - Device physical property issue [Unknown]
  - Product packaging issue [Unknown]
  - Product delivery mechanism issue [Unknown]
  - Product leakage [Unknown]
  - Product dose omission issue [Unknown]
